FAERS Safety Report 7971374-X (Version None)
Quarter: 2011Q4

REPORT INFORMATION
  Report Type: 
  Country: None (occurrence: None)
  Receive Date: 20111212
  Receipt Date: 20111129
  Transmission Date: 20120403
  Serious: Yes (Death, Other)
  Sender: FDA-Public Use
  Company Number: DE-MERCK-0904DEU00052

PATIENT
  Sex: Male

DRUGS (2)
  1. EMEND [Suspect]
     Indication: NAUSEA
     Route: 048
  2. GRANISETRON HYDROCHLORIDE [Concomitant]
     Route: 065

REACTIONS (8)
  - DEATH [None]
  - BLOOD URINE PRESENT [None]
  - OEDEMA [None]
  - ALANINE AMINOTRANSFERASE INCREASED [None]
  - ANAEMIA [None]
  - ASPARTATE AMINOTRANSFERASE INCREASED [None]
  - LIVER FUNCTION TEST ABNORMAL [None]
  - TACHYCARDIA [None]
